FAERS Safety Report 10515292 (Version 1)
Quarter: 2014Q4

REPORT INFORMATION
  Report Type: Spontaneous
  Country: GB (occurrence: GB)
  Receive Date: 20141014
  Receipt Date: 20141014
  Transmission Date: 20150528
  Serious: Yes (Other)
  Sender: FDA-Public Use
  Company Number: GB-AUROBINDO-AUR-APL-2014-10709

PATIENT
  Age: 82 Year
  Sex: Female

DRUGS (3)
  1. AMOXICILLIN 500MG TEVA [Suspect]
     Active Substance: AMOXICILLIN
     Indication: TOOTH INFECTION
     Dosage: 500 MG, 3 TIMES A DAY
     Route: 065
     Dates: start: 20140903, end: 20140909
  2. BENDROFLUMETHIAZIDE [Concomitant]
     Active Substance: BENDROFLUMETHIAZIDE
     Indication: HYPERTENSION
     Dosage: 2.5 MG, ONCE A DAY
     Route: 065
     Dates: start: 2010
  3. RAMIPRIL. [Concomitant]
     Active Substance: RAMIPRIL
     Indication: HYPERTENSION
     Dosage: 2.5 MG, ONCE A DAY
     Route: 065
     Dates: start: 2010

REACTIONS (8)
  - Dysphagia [Recovering/Resolving]
  - Vomiting [Recovering/Resolving]
  - Dysphonia [Recovering/Resolving]
  - Dizziness [Recovering/Resolving]
  - Cough [Recovering/Resolving]
  - Oral candidiasis [Recovering/Resolving]
  - Nausea [Recovering/Resolving]
  - Throat irritation [Recovering/Resolving]
